FAERS Safety Report 14779592 (Version 1)
Quarter: 2018Q2

REPORT INFORMATION
  Report Type: Spontaneous
  Country: IT (occurrence: IT)
  Receive Date: 20180419
  Receipt Date: 20180419
  Transmission Date: 20180711
  Serious: Yes (Hospitalization, Other)
  Sender: FDA-Public Use
  Company Number: IT-IMPAX LABORATORIES, INC-2018-IPXL-01239

PATIENT
  Age: 37 Year
  Sex: Male

DRUGS (2)
  1. CHLOROQUINE PHOSPHATE. [Suspect]
     Active Substance: CHLOROQUINE PHOSPHATE
     Dosage: 5 MG/KG, ON THIRD DAY
     Route: 048
  2. CHLOROQUINE PHOSPHATE. [Suspect]
     Active Substance: CHLOROQUINE PHOSPHATE
     Indication: PLASMODIUM OVALE INFECTION
     Dosage: 10 MG/KG (FIRST AND SECOND DAY), UNK
     Route: 048

REACTIONS (5)
  - Idiopathic interstitial pneumonia [Recovered/Resolved]
  - Drug ineffective [Unknown]
  - Cardiomegaly [Recovered/Resolved]
  - Acute respiratory distress syndrome [Recovered/Resolved]
  - Pleural effusion [Recovered/Resolved]
